FAERS Safety Report 9226698 (Version 1)
Quarter: 2013Q2

REPORT INFORMATION
  Report Type: Spontaneous
  Country: US (occurrence: None)
  Receive Date: 20130410
  Receipt Date: 20130410
  Transmission Date: 20140414
  Serious: Yes (Hospitalization)
  Sender: FDA-Public Use
  Company Number: None

PATIENT
  Age: 69 Year
  Sex: Male
  Weight: 88 kg

DRUGS (18)
  1. METHADONE [Suspect]
     Dosage: 10MG PRN PO
     Route: 048
  2. VITC [Concomitant]
  3. ASA [Concomitant]
  4. CALTRATE [Concomitant]
  5. COREG [Concomitant]
  6. VITD [Concomitant]
  7. SENOKOT [Concomitant]
  8. VYTORIN [Concomitant]
  9. PROZAC [Concomitant]
  10. SYNTHROID [Concomitant]
  11. MVI [Concomitant]
  12. FISH OIL [Concomitant]
  13. OMEPRAZOLE [Concomitant]
  14. ZOFRAN [Concomitant]
  15. MIRALAX [Concomitant]
  16. RANEXA [Concomitant]
  17. SAW PALMETTO [Concomitant]
  18. FLOMAX [Concomitant]

REACTIONS (5)
  - Pneumonia aspiration [None]
  - Constipation [None]
  - Respiratory failure [None]
  - Accidental overdose [None]
  - Pneumonia aspiration [None]
